FAERS Safety Report 10188879 (Version 1)
Quarter: 2014Q2

REPORT INFORMATION
  Report Type: Spontaneous
  Country: US (occurrence: None)
  Receive Date: 20140521
  Receipt Date: 20140521
  Transmission Date: 20141212
  Serious: Yes (Disabling)
  Sender: FDA-Public Use
  Company Number: None

PATIENT
  Age: 29 Year
  Sex: Male

DRUGS (1)
  1. PROPOFOL [Suspect]

REACTIONS (6)
  - Productive cough [None]
  - Rhinitis [None]
  - Mucosal discolouration [None]
  - Productive cough [None]
  - Sputum discoloured [None]
  - Feeling abnormal [None]
